FAERS Safety Report 9515628 (Version 1)
Quarter: 2013Q3

REPORT INFORMATION
  Report Type: Spontaneous
  Country: BR (occurrence: BR)
  Receive Date: 20130911
  Receipt Date: 20130911
  Transmission Date: 20140515
  Serious: Yes (Other)
  Sender: FDA-Public Use
  Company Number: BR-SANOFI-AVENTIS-2013SA088936

PATIENT
  Age: 0 Day
  Sex: Male

DRUGS (1)
  1. CLEXANE [Suspect]
     Indication: FOETAL EXPOSURE TIMING UNSPECIFIED
     Route: 064
     Dates: start: 201211, end: 20130627

REACTIONS (3)
  - Neonatal tachycardia [Recovered/Resolved]
  - Foetal exposure during pregnancy [Unknown]
  - Neonatal tachypnoea [Recovered/Resolved]
